FAERS Safety Report 9525501 (Version 1)
Quarter: 2013Q3

REPORT INFORMATION
  Report Type: Spontaneous
  Country: US (occurrence: US)
  Receive Date: 20130916
  Receipt Date: 20130916
  Transmission Date: 20140515
  Serious: Yes (Hospitalization)
  Sender: FDA-Public Use
  Company Number: US-BAYER-2013-110358

PATIENT
  Age: 29 Year
  Sex: Female

DRUGS (2)
  1. YAZ [Suspect]
  2. ALEVE [Concomitant]
     Dosage: 2 TABLETS DAILY
     Dates: start: 20110729

REACTIONS (2)
  - Pulmonary embolism [None]
  - Deep vein thrombosis [None]
